FAERS Safety Report 19175577 (Version 3)
Quarter: 2021Q3

REPORT INFORMATION
  Report Type: Report from Study
  Country: US (occurrence: US)
  Receive Date: 20210423
  Receipt Date: 20210716
  Transmission Date: 20211014
  Serious: Yes (Other)
  Sender: FDA-Public Use
  Company Number: US-EMD SERONO-9233119

PATIENT
  Age: 52 Year
  Sex: Female

DRUGS (6)
  1. REBIF [Suspect]
     Active Substance: INTERFERON BETA-1A
     Indication: MULTIPLE SCLEROSIS
     Route: 058
     Dates: start: 20180129, end: 20201101
  2. PROZAC [Concomitant]
     Active Substance: FLUOXETINE HYDROCHLORIDE
     Indication: DEPRESSION
  3. REBIF [Suspect]
     Active Substance: INTERFERON BETA-1A
     Route: 058
     Dates: start: 20210118
  4. VALIUM [Suspect]
     Active Substance: DIAZEPAM
     Indication: ANXIETY
     Dosage: HALF TABLET
  5. PROZAC [Concomitant]
     Active Substance: FLUOXETINE HYDROCHLORIDE
     Indication: ANXIETY
  6. BUSPIRONE [Concomitant]
     Active Substance: BUSPIRONE HYDROCHLORIDE
     Indication: DEPRESSION

REACTIONS (9)
  - Pain in extremity [Unknown]
  - Memory impairment [Unknown]
  - Hypersomnia [Unknown]
  - Pneumonia [Unknown]
  - Limb discomfort [Unknown]
  - Somnolence [Unknown]
  - Injection site pain [Unknown]
  - Fatigue [Unknown]
  - Panic attack [Unknown]

NARRATIVE: CASE EVENT DATE: 202012
